FAERS Safety Report 24055886 (Version 1)
Quarter: 2024Q3

REPORT INFORMATION
  Report Type: Spontaneous
  Country: PT (occurrence: PT)
  Receive Date: 20240705
  Receipt Date: 20240705
  Transmission Date: 20241017
  Serious: Yes (Other)
  Sender: Vantive US Healthcare
  Company Number: PT-BAXTER-2024VAN018103

PATIENT
  Age: 60 Year
  Sex: Female

DRUGS (5)
  1. EXTRANEAL [Suspect]
     Active Substance: CALCIUM CHLORIDE\ICODEXTRIN\MAGNESIUM CHLORIDE\SODIUM CHLORIDE\SODIUM LACTATE
     Indication: Peritoneal dialysis
     Dosage: NIGHT DWELL
     Route: 033
  2. CEFTAZIDIME [Concomitant]
     Active Substance: CEFTAZIDIME
     Indication: Peritonitis bacterial
     Dosage: 21 DAYS ANTIBIOGRAM GUIDED TREATMENT
     Route: 065
  3. CEFTAZIDIME [Concomitant]
     Active Substance: CEFTAZIDIME
     Indication: Urinary tract infection bacterial
  4. CEFTAZIDIME [Concomitant]
     Active Substance: CEFTAZIDIME
     Indication: Escherichia peritonitis
  5. VANCOMYCIN [Concomitant]
     Active Substance: VANCOMYCIN
     Indication: Clostridium difficile colitis
     Route: 048

REACTIONS (3)
  - Pancreatitis acute [Unknown]
  - Abdominal distension [Unknown]
  - Abdominal tenderness [Unknown]
